FAERS Safety Report 19949655 (Version 1)
Quarter: 2021Q4

REPORT INFORMATION
  Report Type: Spontaneous
  Country: US (occurrence: US)
  Receive Date: 20211012
  Receipt Date: 20211012
  Transmission Date: 20220303
  Serious: No
  Sender: FDA-Public Use
  Company Number: None

PATIENT
  Sex: Male

DRUGS (1)
  1. SUTENT [Suspect]
     Active Substance: SUNITINIB MALATE
     Indication: Renal cancer
     Dosage: ?          OTHER FREQUENCY:SEE EVENT;
     Route: 048
     Dates: start: 20210305

REACTIONS (2)
  - Pneumonia [None]
  - Therapy interrupted [None]
